FAERS Safety Report 16642685 (Version 2)
Quarter: 2019Q3

REPORT INFORMATION
  Report Type: Spontaneous
  Country: CN (occurrence: CN)
  Receive Date: 20190729
  Receipt Date: 20190731
  Transmission Date: 20191004
  Serious: Yes (Other)
  Sender: FDA-Public Use
  Company Number: CN-BAYER-2019-138530

PATIENT
  Age: 62 Year
  Sex: Female

DRUGS (1)
  1. ULTRAVIST [Suspect]
     Active Substance: IOPROMIDE
     Indication: COMPUTERISED TOMOGRAM CORONARY ARTERY
     Dosage: 60 ML, ONCE
     Route: 042
     Dates: start: 20190630, end: 20190630

REACTIONS (7)
  - Anaphylactic shock [Recovered/Resolved]
  - Asphyxia [Recovered/Resolved]
  - Eye swelling [Recovered/Resolved]
  - Lip swelling [Recovered/Resolved]
  - Swelling face [Recovered/Resolved]
  - Pruritus [Recovered/Resolved]
  - Rash erythematous [Recovered/Resolved]

NARRATIVE: CASE EVENT DATE: 20190630
